FAERS Safety Report 17193762 (Version 1)
Quarter: 2019Q4

REPORT INFORMATION
  Report Type: Report from Study
  Country: US (occurrence: US)
  Receive Date: 20191223
  Receipt Date: 20191223
  Transmission Date: 20200122
  Serious: Yes (Other)
  Sender: FDA-Public Use
  Company Number: US-GILEAD-2019-0443013

PATIENT
  Age: 1 Year
  Sex: Female

DRUGS (1)
  1. AZTREONAM LYSINE [Suspect]
     Active Substance: AZTREONAM LYSINE
     Indication: OFF LABEL USE
     Dosage: 75 MG, TID
     Route: 055

REACTIONS (3)
  - Staphylococcal infection [Unknown]
  - Off label use [Unknown]
  - Pseudomonas infection [Unknown]
